FAERS Safety Report 9735025 (Version 1)
Quarter: 2013Q4

REPORT INFORMATION
  Report Type: Spontaneous
  Country: US (occurrence: US)
  Receive Date: 20131206
  Receipt Date: 20131206
  Transmission Date: 20140711
  Serious: Yes (Other)
  Sender: FDA-Public Use
  Company Number: US-ELI_LILLY_AND_COMPANY-US201312000270

PATIENT
  Sex: Male
  Weight: 97.51 kg

DRUGS (2)
  1. HUMALOG LISPRO [Suspect]
     Indication: PRODUCT USED FOR UNKNOWN INDICATION
     Dosage: UNK
     Route: 058
  2. ALPHA LIPOIC ACID [Concomitant]
     Indication: NERVE INJURY

REACTIONS (8)
  - Cerebrovascular accident [Unknown]
  - Arterial occlusive disease [Unknown]
  - Blood lead increased [Unknown]
  - Blood heavy metal increased [Unknown]
  - Nerve compression [Unknown]
  - Carpal tunnel syndrome [Unknown]
  - Blood glucose increased [Unknown]
  - Blood glucose decreased [Unknown]
